FAERS Safety Report 9669893 (Version 1)
Quarter: 2013Q4

REPORT INFORMATION
  Report Type: Report from Study
  Country: KR (occurrence: KR)
  Receive Date: 20131105
  Receipt Date: 20131105
  Transmission Date: 20140711
  Serious: No
  Sender: FDA-Public Use
  Company Number: PHHY2013KR124378

PATIENT
  Sex: 0

DRUGS (10)
  1. AMN107 [Suspect]
     Indication: CHRONIC MYELOID LEUKAEMIA
     Dosage: 800 MG, UNK
     Route: 048
     Dates: start: 20120913
  2. ACETAMINOPHEN [Concomitant]
     Indication: PROPHYLAXIS
     Dosage: 1950 MG, UNK
     Route: 048
     Dates: start: 20120927, end: 20121003
  3. AFLOQUALONE [Concomitant]
     Indication: PROPHYLAXIS
     Dosage: 60 MG, UNK
     Route: 048
     Dates: start: 20120927, end: 20121003
  4. ATORVASTATIN [Concomitant]
     Indication: PROPHYLAXIS
     Dosage: 10 MG, UNK
     Dates: start: 20090421
  5. CILNIDIPINE [Concomitant]
     Indication: HYPERTENSION
     Dosage: 5 MG, UNK
     Route: 048
     Dates: start: 20051020
  6. GODEX [Concomitant]
     Indication: HEPATIC ENZYME ABNORMAL
     Route: 048
     Dates: start: 20121018, end: 20121031
  7. MOSAPRIDE CITRATE [Concomitant]
     Indication: PROPHYLAXIS
     Route: 048
     Dates: start: 20120920, end: 20121116
  8. PANCREATIN [Concomitant]
     Indication: PROPHYLAXIS
     Route: 048
     Dates: start: 20120920, end: 20130315
  9. RANITIDINE [Concomitant]
     Indication: PROPHYLAXIS
     Dates: start: 20120920, end: 20121116
  10. ZOLPIDEM [Concomitant]
     Indication: INSOMNIA
     Dosage: 6.25 MG, UNK
     Route: 048
     Dates: start: 20121004, end: 20121017

REACTIONS (1)
  - Upper respiratory tract infection [Recovered/Resolved]
